FAERS Safety Report 7443136-3 (Version None)
Quarter: 2011Q2

REPORT INFORMATION
  Report Type: 
  Country: None (occurrence: None)
  Receive Date: 20110428
  Receipt Date: 20110426
  Transmission Date: 20111010
  Serious: Yes (Death, Hospitalization)
  Sender: FDA-Public Use
  Company Number: A0889425A

PATIENT
  Age: 13 Year
  Sex: Male

DRUGS (7)
  1. ADVAIR DISKUS 100/50 [Suspect]
     Indication: ASTHMA
     Dosage: 1PUFF TWICE PER DAY
     Route: 055
     Dates: start: 20041111, end: 20080314
  2. ZYRTEC [Concomitant]
  3. XOPENEX [Concomitant]
  4. ALBUTEROL [Concomitant]
  5. SINGULAIR [Concomitant]
  6. RHINOCORT [Concomitant]
  7. PROVENTIL [Concomitant]
     Dates: end: 20080314

REACTIONS (6)
  - STATUS ASTHMATICUS [None]
  - RESPIRATORY ARREST [None]
  - PNEUMONIA [None]
  - METABOLIC ACIDOSIS [None]
  - CARDIO-RESPIRATORY ARREST [None]
  - HYPOXIC-ISCHAEMIC ENCEPHALOPATHY [None]
